FAERS Safety Report 15155590 (Version 2)
Quarter: 2018Q4

REPORT INFORMATION
  Report Type: Report from Study
  Country: CA (occurrence: CA)
  Receive Date: 20180717
  Receipt Date: 20181026
  Transmission Date: 20190204
  Serious: Yes (Other)
  Sender: FDA-Public Use
  Company Number: PHHY2018CA002235

PATIENT
  Age: 83 Year
  Sex: Male

DRUGS (3)
  1. EXJADE [Suspect]
     Active Substance: DEFERASIROX
     Dosage: 1000 MG, QD
     Route: 048
     Dates: start: 20180824
  2. EXJADE [Suspect]
     Active Substance: DEFERASIROX
     Indication: MYELODYSPLASTIC SYNDROME
     Dosage: 1000 MG, QD
     Route: 048
     Dates: start: 20171221
  3. EXJADE [Suspect]
     Active Substance: DEFERASIROX
     Dosage: 1500 MG, QD
     Route: 048
     Dates: start: 20180127

REACTIONS (12)
  - Dizziness [Unknown]
  - Haemoglobin decreased [Unknown]
  - Blood urine present [Unknown]
  - Serum ferritin decreased [Unknown]
  - Serum ferritin increased [Unknown]
  - Hiccups [Unknown]
  - Blood creatinine increased [Unknown]
  - Pruritus [Unknown]
  - Urine abnormality [Unknown]
  - Enzyme level increased [Unknown]
  - Blood glucose abnormal [Unknown]
  - Nausea [Unknown]

NARRATIVE: CASE EVENT DATE: 201712
